FAERS Safety Report 4708538-4 (Version None)
Quarter: 2005Q3

REPORT INFORMATION
  Report Type: 
  Country: None (occurrence: None)
  Receive Date: 20050707
  Receipt Date: 20050624
  Transmission Date: 20060218
  Serious: Yes (Life-Threatening)
  Sender: FDA-Public Use
  Company Number: FR-GLAXOSMITHKLINE-B0385640A

PATIENT
  Age: 79 Year
  Sex: Female
  Weight: 60 kg

DRUGS (6)
  1. NIMBEX [Suspect]
     Route: 042
     Dates: start: 20050331, end: 20050331
  2. ULTIVA [Suspect]
     Route: 042
     Dates: start: 20050331, end: 20050331
  3. AUGMENTIN '125' [Suspect]
     Indication: ILL-DEFINED DISORDER
     Route: 042
     Dates: start: 20050331, end: 20050331
  4. ACUPAN [Suspect]
     Indication: ILL-DEFINED DISORDER
     Route: 042
     Dates: start: 20050331, end: 20050331
  5. KETAMINE [Suspect]
     Indication: ILL-DEFINED DISORDER
     Dates: start: 20050331, end: 20050331
  6. DIPRIVAN [Suspect]
     Indication: ILL-DEFINED DISORDER
     Route: 042
     Dates: start: 20050331, end: 20050331

REACTIONS (2)
  - BRONCHOSPASM [None]
  - RASH [None]
